FAERS Safety Report 8337605-1 (Version None)
Quarter: 2012Q2

REPORT INFORMATION
  Report Type: 
  Country: None (occurrence: None)
  Receive Date: 20120504
  Receipt Date: 19860416
  Transmission Date: 20120825
  Serious: Yes (Hospitalization)
  Sender: FDA-Public Use
  Company Number: ES-ROCHE-6043

PATIENT
  Age: 66 Year
  Sex: Male

DRUGS (5)
  1. ISOSORBIDE DINITRATE [Concomitant]
     Route: 048
  2. ELORGAN [Concomitant]
     Route: 048
  3. DIGOXIN [Concomitant]
     Route: 048
  4. TICLID [Suspect]
     Indication: MYOCARDIAL ISCHAEMIA
     Route: 048
     Dates: start: 19840504, end: 19840619
  5. AMIODARONE HCL [Concomitant]
     Route: 048

REACTIONS (3)
  - ANAEMIA [None]
  - NEUTROPENIA [None]
  - BONE MARROW FAILURE [None]
